FAERS Safety Report 5201923-6 (Version None)
Quarter: 2007Q1

REPORT INFORMATION
  Report Type: 
  Country: None (occurrence: None)
  Receive Date: 20070104
  Receipt Date: 20061227
  Transmission Date: 20070707
  Serious: Yes (Other)
  Sender: FDA-Public Use
  Company Number: DEWYE466308NOV06

PATIENT
  Sex: Female

DRUGS (2)
  1. VENLAFAXINE HCL [Suspect]
     Dosage: SEE IMAGE
     Dates: start: 20061201
  2. OPIPRAMOL (OPIPRAMOL, , 0) [Suspect]
     Dosage: ORAL
     Route: 048

REACTIONS (1)
  - ANGIOEDEMA [None]
